FAERS Safety Report 23864392 (Version 2)
Quarter: 2024Q3

REPORT INFORMATION
  Report Type: Report from Study
  Country: US (occurrence: US)
  Receive Date: 20240516
  Receipt Date: 20240808
  Transmission Date: 20241017
  Serious: No
  Sender: ALEXION PHARMACEUTICALS
  Company Number: US-ALXN-A202305167

PATIENT
  Sex: Male

DRUGS (2)
  1. SOLIRIS [Suspect]
     Active Substance: ECULIZUMAB
     Indication: Myasthenia gravis
     Dosage: UNK
     Route: 042
  2. PREDNISONE [Suspect]
     Active Substance: PREDNISONE
     Indication: Knee deformity
     Dosage: UNK
     Route: 065

REACTIONS (7)
  - Suspected COVID-19 [Unknown]
  - Arthropathy [Not Recovered/Not Resolved]
  - Dyspnoea [Recovering/Resolving]
  - Rhinorrhoea [Not Recovered/Not Resolved]
  - Asthenopia [Unknown]
  - Pollakiuria [Unknown]
  - Eyelid ptosis [Unknown]

NARRATIVE: CASE EVENT DATE: 20220101
